FAERS Safety Report 8768881 (Version 3)
Quarter: 2012Q4

REPORT INFORMATION
  Report Type: 
  Country: JP (occurrence: JP)
  Receive Date: 20120906
  Receipt Date: 20121008
  Transmission Date: 20130627
  Serious: Yes (Death, Other)
  Sender: FDA-Public Use
  Company Number: JP-ROCHE-1108765

PATIENT
  Age: 59 Year
  Sex: Female
  Weight: 74 kg

DRUGS (6)
  1. AVASTIN [Suspect]
     Indication: BREAST CANCER METASTATIC
     Dosage: Dosage is uncertain
     Route: 041
     Dates: start: 20120315, end: 20120315
  2. PACLITAXEL [Concomitant]
     Indication: BREAST CANCER METASTATIC
     Route: 041
     Dates: start: 20120315, end: 20120315
  3. VENA [Concomitant]
     Route: 048
     Dates: start: 20120315, end: 20120315
  4. DEXAMETHASONE [Concomitant]
     Route: 042
     Dates: start: 20120315, end: 20120315
  5. ZANTAC [Concomitant]
     Route: 042
     Dates: start: 20120315, end: 20120315
  6. GRANISETRON [Concomitant]
     Route: 042
     Dates: start: 20120315, end: 20120315

REACTIONS (3)
  - Pneumothorax [Fatal]
  - Respiratory failure [Fatal]
  - Malignant pleural effusion [Unknown]
